FAERS Safety Report 19233435 (Version 1)
Quarter: 2021Q2

REPORT INFORMATION
  Report Type: Spontaneous
  Country: HN (occurrence: HN)
  Receive Date: 20210507
  Receipt Date: 20210507
  Transmission Date: 20210717
  Serious: Yes (Death, Other)
  Sender: FDA-Public Use
  Company Number: NVSC2021HN103363

PATIENT
  Age: 80 Year
  Sex: Female

DRUGS (1)
  1. GLIVEC [Suspect]
     Active Substance: IMATINIB MESYLATE
     Indication: CHRONIC MYELOID LEUKAEMIA
     Dosage: 400 MG
     Route: 065

REACTIONS (4)
  - Asthenia [Unknown]
  - Accident at home [Fatal]
  - Respiratory distress [Unknown]
  - Cyanosis [Unknown]

NARRATIVE: CASE EVENT DATE: 20210428
